FAERS Safety Report 10560081 (Version 3)
Quarter: 2015Q1

REPORT INFORMATION
  Report Type: Spontaneous
  Country: US (occurrence: US)
  Receive Date: 20141103
  Receipt Date: 20150123
  Transmission Date: 20150720
  Serious: Yes (Hospitalization, Other)
  Sender: FDA-Public Use
  Company Number: US-BEH-2014045918

PATIENT
  Age: 67 Year
  Sex: Female

DRUGS (31)
  1. ADVAIR HFA [Concomitant]
     Active Substance: FLUTICASONE PROPIONATE\SALMETEROL XINAFOATE
     Dosage: 100/50
  2. BUSPIRONE [Concomitant]
     Active Substance: BUSPIRONE HYDROCHLORIDE
  3. GABAPENTIN. [Concomitant]
     Active Substance: GABAPENTIN
  4. PROVENTIL [Concomitant]
     Active Substance: ALBUTEROL
  5. NEXIUM [Concomitant]
     Active Substance: ESOMEPRAZOLE MAGNESIUM
  6. PROCHLORPERAZINE. [Concomitant]
     Active Substance: PROCHLORPERAZINE
     Dosage: 10
  7. PREDNISONE ACETATE [Concomitant]
     Active Substance: PREDNISONE ACETATE
  8. CAL MAG [Concomitant]
     Dosage: 600/900
  9. DYAZIDE [Concomitant]
     Active Substance: HYDROCHLOROTHIAZIDE\TRIAMTERENE
  10. HIZENTRA [Suspect]
     Active Substance: HUMAN IMMUNOGLOBULIN G
     Indication: PRODUCT USED FOR UNKNOWN INDICATION
     Route: 058
  11. HIZENTRA [Suspect]
     Active Substance: HUMAN IMMUNOGLOBULIN G
     Dosage: 4G/20 ML
  12. AZITHROMYCIN [Concomitant]
     Active Substance: AZITHROMYCIN ANHYDROUS
  13. SYNTHROID [Concomitant]
     Active Substance: LEVOTHYROXINE SODIUM
  14. BENADRYL [Concomitant]
     Active Substance: DIPHENHYDRAMINE HYDROCHLORIDE
  15. EMERGEN C [Concomitant]
     Active Substance: MINERALS\VITAMINS
  16. HIZENTRA [Suspect]
     Active Substance: HUMAN IMMUNOGLOBULIN G
     Dosage: 17-OCT-2014
  17. HIZENTRA [Suspect]
     Active Substance: HUMAN IMMUNOGLOBULIN G
  18. KLONOPIN [Concomitant]
     Active Substance: CLONAZEPAM
     Dosage: .5
  19. CRANBERRY. [Concomitant]
     Active Substance: CRANBERRY
  20. SINGULAIR [Concomitant]
     Active Substance: MONTELUKAST SODIUM
  21. MELATONIN [Concomitant]
     Active Substance: MELATONIN
     Dosage: 10
  22. PROBIOTIC [Concomitant]
     Active Substance: PROBIOTICS NOS
  23. GLYBURIDE. [Concomitant]
     Active Substance: GLYBURIDE
  24. POTASSIUM [Concomitant]
     Active Substance: POTASSIUM
  25. TIZANIDINE (TIZANIDINE) [Concomitant]
     Active Substance: TIZANIDINE
  26. HIZENTRA [Suspect]
     Active Substance: HUMAN IMMUNOGLOBULIN G
     Indication: IMMUNODEFICIENCY COMMON VARIABLE
  27. TOPIRAMATE. [Concomitant]
     Active Substance: TOPIRAMATE
     Dosage: 75
  28. LASIX [Concomitant]
     Active Substance: FUROSEMIDE
  29. HIZENTRA [Suspect]
     Active Substance: HUMAN IMMUNOGLOBULIN G
     Dosage: 2G/10ML
  30. ALLERGY INJECTIONS [Concomitant]
  31. MULTIVITAMIN [Concomitant]
     Active Substance: VITAMINS

REACTIONS (4)
  - Diverticular perforation [Recovered/Resolved]
  - Diverticulitis [Recovered/Resolved]
  - Thrombophlebitis superficial [Not Recovered/Not Resolved]
  - Pyrexia [Recovered/Resolved]

NARRATIVE: CASE EVENT DATE: 20141013
